FAERS Safety Report 14954506 (Version 1)
Quarter: 2018Q2

REPORT INFORMATION
  Report Type: Spontaneous
  Country: None (occurrence: GB)
  Receive Date: 20180530
  Receipt Date: 20180530
  Transmission Date: 20180711
  Serious: Yes (Other)
  Sender: FDA-Public Use
  Company Number: GB-BIODELIVERY SCIENCES INTERNATIONAL-2017BDSI0125

PATIENT
  Sex: Male

DRUGS (3)
  1. TRAMADOL. [Suspect]
     Active Substance: TRAMADOL
     Indication: PAIN IN EXTREMITY
  2. FENTANYL. [Suspect]
     Active Substance: FENTANYL
     Indication: PRODUCT USED FOR UNKNOWN INDICATION
  3. OXYCODONE [Suspect]
     Active Substance: OXYCODONE
     Indication: PRODUCT USED FOR UNKNOWN INDICATION

REACTIONS (9)
  - Erectile dysfunction [Unknown]
  - Dysarthria [Unknown]
  - Nightmare [Unknown]
  - Insomnia [Unknown]
  - Coordination abnormal [Unknown]
  - Drug dependence [Unknown]
  - Anxiety [Unknown]
  - Headache [Unknown]
  - Hallucination [Unknown]
